FAERS Safety Report 7232557-X (Version None)
Quarter: 2011Q1

REPORT INFORMATION
  Report Type: 
  Country: None (occurrence: None)
  Receive Date: 20110119
  Receipt Date: 20110117
  Transmission Date: 20110831
  Serious: Yes (Other)
  Sender: FDA-Public Use
  Company Number: IT-BAYER-2011-005358

PATIENT
  Sex: Male

DRUGS (1)
  1. NEXAVAR [Suspect]
     Indication: HEPATIC NEOPLASM
     Dosage: 800 MG, QD
     Route: 048
     Dates: start: 20100215, end: 20100330

REACTIONS (2)
  - AMMONIA INCREASED [None]
  - ENCEPHALOPATHY [None]
